FAERS Safety Report 7786306-7 (Version None)
Quarter: 2011Q3

REPORT INFORMATION
  Report Type: 
  Country: None (occurrence: None)
  Receive Date: 20110928
  Receipt Date: 20110928
  Transmission Date: 20111222
  Serious: Yes (Life-Threatening, Disabling, Other)
  Sender: FDA-Public Use
  Company Number: None

PATIENT
  Sex: Female
  Weight: 74.8435 kg

DRUGS (1)
  1. HYDROCHLOROTHIAZIDE [Suspect]
     Indication: HYPERTENSION
     Dosage: 25 MG 1 DAILY
     Dates: start: 20090101, end: 20110101

REACTIONS (7)
  - OCULAR HYPERAEMIA [None]
  - SLUGGISHNESS [None]
  - POOR PERIPHERAL CIRCULATION [None]
  - CARDIAC FLUTTER [None]
  - DYSARTHRIA [None]
  - FEELING ABNORMAL [None]
  - MENTAL DISORDER [None]
